FAERS Safety Report 6200115-1 (Version None)
Quarter: 2009Q2

REPORT INFORMATION
  Report Type: 
  Country: None (occurrence: None)
  Receive Date: 20090522
  Receipt Date: 20090515
  Transmission Date: 20091009
  Serious: Yes (Other)
  Sender: FDA-Public Use
  Company Number: PHHY2008JP31593

PATIENT
  Sex: Female

DRUGS (9)
  1. ZOMETA [Suspect]
     Indication: METASTASES TO BONE
     Dosage: 4 MG /DAY
     Route: 042
     Dates: start: 20060626, end: 20070911
  2. AREDIA [Suspect]
     Indication: METASTASES TO BONE
     Route: 042
  3. HYSRON [Suspect]
     Indication: BREAST CANCER
     Dosage: 3DF/DAY
     Route: 048
     Dates: start: 20061130, end: 20071217
  4. ENDOXAN [Suspect]
     Indication: BREAST CANCER
     Dosage: UNK
     Dates: start: 20071130, end: 20071217
  5. FURTULON [Suspect]
     Indication: BREAST CANCER
     Dosage: 6DF/DAY
     Dates: start: 20061130, end: 20071217
  6. CALCIUM LACTATE [Concomitant]
     Dosage: 3 DF, UNK
  7. ONEALFA [Concomitant]
     Dosage: 1 DF, UNK
     Route: 048
  8. CEPHARANTHIN [Concomitant]
     Dosage: 6 DF, UNK
     Route: 048
  9. SELBEX [Concomitant]
     Dosage: 3 DF, UNK
     Route: 048

REACTIONS (7)
  - BONE DISORDER [None]
  - GINGIVAL PAIN [None]
  - IMMUNOSUPPRESSION [None]
  - JAW OPERATION [None]
  - OSTEOMYELITIS [None]
  - OSTEONECROSIS [None]
  - PRIMARY SEQUESTRUM [None]
